FAERS Safety Report 4507022-0 (Version None)
Quarter: 2004Q4

REPORT INFORMATION
  Report Type: 
  Country: None (occurrence: None)
  Receive Date: 20041117
  Receipt Date: 20041104
  Transmission Date: 20050328
  Serious: Yes (Hospitalization)
  Sender: FDA-Public Use
  Company Number: 2004-BP-11309YA

PATIENT
  Sex: Male

DRUGS (1)
  1. OMNIC                (TAMSULOSIN) [Suspect]
     Dosage: 0.4 MG PO
     Route: 048
     Dates: start: 20041001, end: 20041001

REACTIONS (1)
  - THROMBOCYTOPENIA [None]
